FAERS Safety Report 7313650-X (Version None)
Quarter: 2011Q1

REPORT INFORMATION
  Report Type: 
  Country: None (occurrence: None)
  Receive Date: 20110225
  Receipt Date: 20110215
  Transmission Date: 20110831
  Serious: Yes (Other)
  Sender: FDA-Public Use
  Company Number: US-PFIZER INC-2010148359

PATIENT
  Sex: Male
  Weight: 87 kg

DRUGS (25)
  1. PLAVIX [Concomitant]
     Dosage: 75 MG, 1X/DAY
     Route: 048
  2. ISOSORBIDE [Concomitant]
     Dosage: 10 MG, 1X/DAY
     Route: 048
  3. ZINC [Concomitant]
     Dosage: 50 MG, 1X/DAY, 1 TAB IN MORNING
     Route: 048
  4. VITAMIN B-12 [Concomitant]
     Dosage: UNK
     Route: 048
  5. CHANTIX [Suspect]
     Indication: SMOKING CESSATION THERAPY
     Dosage: 0.5 MG, 2X/DAY
     Route: 048
     Dates: start: 20101005
  6. CYMBALTA [Concomitant]
     Indication: ANXIETY
     Dosage: 50 MG, 1X/DAY
     Route: 048
  7. ASPIRIN [Concomitant]
     Dosage: 81 MG, 1X/DAY
     Route: 048
  8. REQUIP [Concomitant]
     Dosage: 0.5 MG, 1X/DAY
     Route: 048
  9. ASTELIN [Concomitant]
     Dosage: 1 PUFF ONCE DAILY IN MORNING, 1 DOSE
  10. LIPITOR [Concomitant]
     Dosage: 1/2 TAB OF 40MG MORNING AND EVENING
     Route: 048
  11. NEURONTIN [Concomitant]
     Dosage: 4 TABS AT NIGHT OF 300MG
     Route: 048
  12. LISINOPRIL [Concomitant]
     Dosage: 1/2 TABLET OF 10MG
  13. ADVAIR DISKUS 100/50 [Concomitant]
     Indication: CHRONIC OBSTRUCTIVE PULMONARY DISEASE
  14. SPIRIVA [Concomitant]
     Indication: EMPHYSEMA
     Dosage: 18 MCG DAILY
     Route: 055
  15. ALVESCO [Concomitant]
     Indication: EMPHYSEMA
     Dosage: 160 MCG ONCE DAILY AT NIGHT, 1 DOSE
     Route: 055
  16. ALVESCO [Concomitant]
     Indication: CHRONIC OBSTRUCTIVE PULMONARY DISEASE
  17. LASIX [Concomitant]
     Dosage: 40 MG, 1X/DAY
     Route: 048
  18. CALCITRIOL [Concomitant]
     Dosage: 1 TAB M-W-F ONLY
     Route: 048
  19. CARVEDILOL [Concomitant]
     Dosage: 25 MG, 2X/DAY
     Route: 048
  20. BUSPAR [Concomitant]
     Indication: ANXIETY
     Dosage: 15 MG, 1X/DAY
     Route: 048
  21. PREVACID [Concomitant]
     Dosage: 30 MG 2 TABS IN EVENING
     Route: 048
  22. PREVENTIL MDI [Concomitant]
     Dosage: 2 PUFFS PRN INHALER
  23. ADVAIR DISKUS 100/50 [Concomitant]
     Indication: EMPHYSEMA
     Dosage: 250/50 TWICE DAY PUFF, 2 PUFFS MORNING AND 2 PUFFS EVENING
  24. SPIRIVA [Concomitant]
     Indication: CHRONIC OBSTRUCTIVE PULMONARY DISEASE
  25. EFFEXOR [Concomitant]
     Dosage: 75 MG, UNK
     Route: 048
     Dates: start: 20090601, end: 20100515

REACTIONS (1)
  - LEUKOPLAKIA [None]
